FAERS Safety Report 17926454 (Version 1)
Quarter: 2020Q2

REPORT INFORMATION
  Report Type: Spontaneous
  Country: PK (occurrence: PK)
  Receive Date: 20200622
  Receipt Date: 20200622
  Transmission Date: 20200714
  Serious: Yes (Death)
  Sender: FDA-Public Use
  Company Number: PK-ROCHE-2626173

PATIENT
  Age: 61 Year
  Sex: Male
  Weight: 80 kg

DRUGS (1)
  1. ACTEMRA [Suspect]
     Active Substance: TOCILIZUMAB
     Indication: COVID-19 PNEUMONIA
     Dosage: FREQUENCY ONCE
     Route: 042
     Dates: start: 20200606, end: 20200606

REACTIONS (3)
  - Off label use [Unknown]
  - Cardio-respiratory arrest [Fatal]
  - Intentional product use issue [Unknown]
